FAERS Safety Report 9684603 (Version 2)
Quarter: 2013Q4

REPORT INFORMATION
  Report Type: Spontaneous
  Country: US (occurrence: US)
  Receive Date: 20131112
  Receipt Date: 20131112
  Transmission Date: 20140711
  Serious: Yes (Death, Hospitalization)
  Sender: FDA-Public Use
  Company Number: US-TMC-CABO-13003484

PATIENT
  Age: 57 Year
  Sex: Male

DRUGS (24)
  1. COMETRIQ [Suspect]
     Indication: RENAL CANCER
     Dosage: 60 MG, QD
     Route: 048
     Dates: start: 20130315, end: 201310
  2. FENOFIBRATE [Concomitant]
  3. AZOPT [Concomitant]
  4. COMBIGAN [Concomitant]
  5. TRAVATANZ [Concomitant]
  6. ALAWAY [Concomitant]
  7. XGEVA [Concomitant]
  8. CITRACAL [Concomitant]
  9. MEGACE [Concomitant]
  10. MS CONTIN [Concomitant]
  11. ALBUTEROL [Concomitant]
  12. TYLENOL [Concomitant]
  13. ATIVAN [Concomitant]
  14. RITALIN [Concomitant]
  15. MUCINEX [Concomitant]
  16. LOMOTIL [Concomitant]
  17. IMODIUM [Concomitant]
  18. ACETYLCYSTEINE [Concomitant]
  19. REMERON [Concomitant]
  20. ONDANSETRON [Concomitant]
  21. MIRALAX [Concomitant]
  22. SENOKOT [Concomitant]
  23. ZOFRAN [Concomitant]
  24. SENNA [Concomitant]

REACTIONS (3)
  - Bronchial carcinoma [Unknown]
  - Malignant neoplasm progression [Fatal]
  - Off label use [Unknown]
